FAERS Safety Report 12317394 (Version 2)
Quarter: 2016Q2

REPORT INFORMATION
  Report Type: Spontaneous
  Country: US (occurrence: US)
  Receive Date: 20160429
  Receipt Date: 20160510
  Transmission Date: 20160815
  Serious: No
  Sender: FDA-Public Use
  Company Number: US-PFIZER INC-2016197562

PATIENT
  Age: 14 Year
  Sex: Male
  Weight: 99 kg

DRUGS (4)
  1. GENOTROPIN [Suspect]
     Active Substance: SOMATROPIN
     Indication: BODY HEIGHT BELOW NORMAL
     Dosage: 1.8 MG, WEEKLY ( 7 DAYS A WEEK)
     Route: 058
     Dates: start: 20160405
  2. GENOTROPIN [Suspect]
     Active Substance: SOMATROPIN
     Indication: PRADER-WILLI SYNDROME
  3. ZYRTEC [Concomitant]
     Active Substance: CETIRIZINE HYDROCHLORIDE
     Dosage: 10 MG, UNK
  4. GENOTROPIN [Suspect]
     Active Substance: SOMATROPIN
     Indication: CONGENITAL ANOMALY
     Dosage: 1.8 MG, WEEKLY (1.8MG, 7 DAYS PER WEEK)
     Route: 058
     Dates: start: 201603

REACTIONS (4)
  - Pain in extremity [Unknown]
  - Retching [Unknown]
  - Vomiting [Unknown]
  - Cold sweat [Unknown]

NARRATIVE: CASE EVENT DATE: 20160505
